FAERS Safety Report 17002704 (Version 2)
Quarter: 2019Q4

REPORT INFORMATION
  Report Type: Spontaneous
  Country: FR (occurrence: FR)
  Receive Date: 20191107
  Receipt Date: 20191217
  Transmission Date: 20200122
  Serious: Yes (Other)
  Sender: FDA-Public Use
  Company Number: FR-UCBSA-2019045785

PATIENT
  Age: 37 Year
  Sex: Female

DRUGS (7)
  1. KEPPRA [Suspect]
     Active Substance: LEVETIRACETAM
     Indication: PARTIAL SEIZURES
     Dosage: 1000 MG DAILY
  2. ZEBINIX [Suspect]
     Active Substance: ESLICARBAZEPINE ACETATE
     Indication: PARTIAL SEIZURES
     Dosage: 800 MG ,2 DOSAGE FORM DAILY
     Route: 048
  3. FYCOMPA [Suspect]
     Active Substance: PERAMPANEL
     Dosage: 8 OR 10 MG DAILY
     Route: 048
  4. FYCOMPA [Suspect]
     Active Substance: PERAMPANEL
     Indication: PARTIAL SEIZURES
     Dosage: 2 MG DAILY
     Route: 048
     Dates: start: 201910, end: 20191015
  5. FYCOMPA [Suspect]
     Active Substance: PERAMPANEL
     Dosage: 4 MG DAILY
     Route: 048
     Dates: start: 20191016, end: 2019
  6. URBANYL [Concomitant]
     Active Substance: CLOBAZAM
     Indication: PARTIAL SEIZURES
  7. FYCOMPA [Suspect]
     Active Substance: PERAMPANEL
     Dosage: 6   MG DAILY
     Route: 048
     Dates: start: 2019

REACTIONS (4)
  - Status epilepticus [Unknown]
  - Seizure [Recovering/Resolving]
  - Generalised tonic-clonic seizure [Unknown]
  - Drug ineffective [Unknown]
